FAERS Safety Report 7291607-5 (Version None)
Quarter: 2011Q1

REPORT INFORMATION
  Report Type: 
  Country: None (occurrence: None)
  Receive Date: 20110214
  Receipt Date: 20110208
  Transmission Date: 20110831
  Serious: Yes (Hospitalization, Other)
  Sender: FDA-Public Use
  Company Number: CHPA2011US02459

PATIENT
  Age: 49 Year
  Sex: Female

DRUGS (4)
  1. HYDROCODONE [Concomitant]
     Indication: PAIN
  2. CLONAZEPAM [Concomitant]
  3. VOLTAREN [Suspect]
     Indication: MUSCULOSKELETAL PAIN
     Dosage: 4 G, QID
     Route: 061
     Dates: end: 20110208
  4. TYLENOL [Concomitant]
     Route: 048

REACTIONS (6)
  - DRUG ADMINISTERED AT INAPPROPRIATE SITE [None]
  - INTESTINAL ULCER PERFORATION [None]
  - PANCREATITIS [None]
  - OFF LABEL USE [None]
  - GASTRIC ULCER HAEMORRHAGE [None]
  - OVERDOSE [None]
